FAERS Safety Report 19110750 (Version 2)
Quarter: 2021Q2

REPORT INFORMATION
  Report Type: Other
  Country: US (occurrence: US)
  Receive Date: 20210409
  Receipt Date: 20210419
  Transmission Date: 20210717
  Serious: Yes (Hospitalization)
  Sender: FDA-Public Use
  Company Number: US-ROCHE-2802312

PATIENT
  Age: 81 Year
  Sex: Female

DRUGS (4)
  1. ROZLYTREK [Suspect]
     Active Substance: ENTRECTINIB
     Indication: AUTONOMIC NEUROPATHY
  2. ROZLYTREK [Suspect]
     Active Substance: ENTRECTINIB
     Indication: LUNG NEOPLASM MALIGNANT
     Dosage: TAKE 3 CAPSULE(S) BY MOUTH EVERY NIGHT AT BEDTIME
     Route: 048
  3. ROZLYTREK [Suspect]
     Active Substance: ENTRECTINIB
     Indication: AUTONOMIC NEUROPATHY
  4. ROZLYTREK [Suspect]
     Active Substance: ENTRECTINIB
     Indication: AGRANULOCYTOSIS

REACTIONS (1)
  - COVID-19 [Unknown]

NARRATIVE: CASE EVENT DATE: 202012
